FAERS Safety Report 11013761 (Version 2)
Quarter: 2015Q2

REPORT INFORMATION
  Report Type: Spontaneous
  Country: US (occurrence: US)
  Receive Date: 20150412
  Receipt Date: 20150526
  Transmission Date: 20150821
  Serious: No
  Sender: FDA-Public Use
  Company Number: US-JNJFOC-20130709131

PATIENT
  Sex: Female

DRUGS (3)
  1. PANCREAZE [Suspect]
     Active Substance: PANCRELIPASE
     Indication: PANCREATIC INSUFFICIENCY
     Dosage: 21000 UNIT, 3-4 TIMES DAILY
     Route: 048
  2. PANCREAZE [Suspect]
     Active Substance: PANCRELIPASE
     Indication: PANCREATIC INSUFFICIENCY
     Dosage: 31500 UNIT, 3-4 TIMES DAILY
     Route: 048
  3. PANCREAZE [Suspect]
     Active Substance: PANCRELIPASE
     Indication: PANCREATIC INSUFFICIENCY
     Dosage: 105000 UNIT, 3-4 TIMES DAILY
     Route: 048
     Dates: start: 2012

REACTIONS (2)
  - Drug ineffective [Recovered/Resolved]
  - Product container issue [Unknown]

NARRATIVE: CASE EVENT DATE: 2012
